FAERS Safety Report 15803245 (Version 7)
Quarter: 2022Q3

REPORT INFORMATION
  Report Type: Report from Study
  Country: CN (occurrence: CN)
  Receive Date: 20190109
  Receipt Date: 20220823
  Transmission Date: 20221027
  Serious: Yes (Other)
  Sender: FDA-Public Use
  Company Number: CN-JNJFOC-20190106270

PATIENT
  Age: 64 Year
  Sex: Male
  Weight: 52 kg

DRUGS (10)
  1. BEDAQUILINE [Suspect]
     Active Substance: BEDAQUILINE
     Indication: Tuberculosis
     Route: 048
     Dates: start: 20181207, end: 20181220
  2. BEDAQUILINE [Suspect]
     Active Substance: BEDAQUILINE
     Route: 048
     Dates: start: 20181222, end: 20190225
  3. PROTIONAMIDE [Suspect]
     Active Substance: PROTIONAMIDE
     Indication: Tuberculosis
     Route: 048
     Dates: start: 20181207, end: 20190107
  4. AMIKACIN [Suspect]
     Active Substance: AMIKACIN
     Indication: Tuberculosis
     Route: 041
     Dates: start: 20181207, end: 20190114
  5. CLOFAZIMINE [Suspect]
     Active Substance: CLOFAZIMINE
     Indication: Tuberculosis
     Route: 048
     Dates: start: 20181207, end: 20190225
  6. CLOFAZIMINE [Suspect]
     Active Substance: CLOFAZIMINE
     Route: 048
     Dates: start: 20190402
  7. MOXIFLOXACIN [Suspect]
     Active Substance: MOXIFLOXACIN
     Indication: Tuberculosis
     Route: 041
     Dates: start: 20181207, end: 20190225
  8. CYCLOSERINE [Suspect]
     Active Substance: CYCLOSERINE
     Indication: Tuberculosis
     Route: 048
     Dates: start: 20181207, end: 20190225
  9. LINEZOLID [Suspect]
     Active Substance: LINEZOLID
     Indication: Tuberculosis
     Route: 048
     Dates: start: 20181207, end: 20190225
  10. LINEZOLID [Suspect]
     Active Substance: LINEZOLID
     Route: 048
     Dates: start: 20190402

REACTIONS (3)
  - Hepatotoxicity [Recovering/Resolving]
  - Electrocardiogram QT prolonged [Recovering/Resolving]
  - Vestibular disorder [Recovering/Resolving]

NARRATIVE: CASE EVENT DATE: 20190103
